FAERS Safety Report 9869191 (Version 2)
Quarter: 2014Q1

REPORT INFORMATION
  Report Type: Spontaneous
  Country: US (occurrence: US)
  Receive Date: 20140205
  Receipt Date: 20140320
  Transmission Date: 20141002
  Serious: No
  Sender: FDA-Public Use
  Company Number: US-B.I. PHARMACEUTICALS,INC./RIDGEFIELD-2014-BI-03798BP

PATIENT
  Age: 66 Year
  Sex: Male
  Weight: 92 kg

DRUGS (2)
  1. SPIRIVA [Suspect]
     Indication: BRONCHIECTASIS
     Dosage: 18 MCG
     Route: 055
     Dates: start: 201309
  2. ADVAIR [Concomitant]
     Indication: PRODUCT USED FOR UNKNOWN INDICATION
     Route: 065

REACTIONS (3)
  - Intentional overdose [Recovered/Resolved]
  - Off label use [Unknown]
  - Product quality issue [Unknown]
